FAERS Safety Report 9016223 (Version 1)
Quarter: 2013Q1

REPORT INFORMATION
  Report Type: Spontaneous
  Country: US (occurrence: US)
  Receive Date: 20130116
  Receipt Date: 20130116
  Transmission Date: 20140127
  Serious: Yes (Hospitalization)
  Sender: FDA-Public Use
  Company Number: US-BAXTER-2012BAX028494

PATIENT
  Age: 48 Year
  Sex: Female

DRUGS (1)
  1. GAMMAGARD LIQUID [Suspect]
     Indication: HYPOGLOBULINAEMIA
     Route: 042
     Dates: start: 201211

REACTIONS (8)
  - Pneumonia [Unknown]
  - Sputum purulent [Unknown]
  - Malaise [Unknown]
  - Chest discomfort [Unknown]
  - Musculoskeletal chest pain [Unknown]
  - Hyperhidrosis [Unknown]
  - Chills [Unknown]
  - Pyrexia [Unknown]
